FAERS Safety Report 9870451 (Version 1)
Quarter: 2014Q1

REPORT INFORMATION
  Report Type: Spontaneous
  Country: US (occurrence: None)
  Receive Date: 20140203
  Receipt Date: 20140203
  Transmission Date: 20141002
  Serious: Yes (Hospitalization)
  Sender: FDA-Public Use
  Company Number: 2014US0032

PATIENT
  Sex: Female

DRUGS (1)
  1. KINERET (ANAKINRA), NOT AVAILABLE [Suspect]
     Indication: SPONDYLOPATHY TRAUMATIC
     Dosage: 100 MG, 1 IN 1 D, SUBCUTANEOUS
     Route: 058

REACTIONS (1)
  - Pain [None]
